FAERS Safety Report 14092868 (Version 3)
Quarter: 2017Q4

REPORT INFORMATION
  Report Type: Spontaneous
  Country: JP (occurrence: JP)
  Receive Date: 20171016
  Receipt Date: 20171107
  Transmission Date: 20180321
  Serious: Yes (Death)
  Sender: FDA-Public Use
  Company Number: JP-SHIONOGI, INC-2017001029

PATIENT
  Age: 80 Year
  Sex: Male

DRUGS (4)
  1. CODEINE                            /00012602/ [Suspect]
     Active Substance: CODEINE PHOSPHATE
     Route: 065
  2. SYMPROIC [Suspect]
     Active Substance: NALDEMEDINE
     Indication: CONSTIPATION PROPHYLAXIS
     Dosage: 0.2 MG, QD
     Route: 048
  3. FENTOS [Concomitant]
     Active Substance: FENTANYL
     Indication: CANCER PAIN
     Route: 003
  4. OXYCONTIN [Concomitant]
     Active Substance: OXYCODONE HYDROCHLORIDE
     Indication: CANCER PAIN
     Route: 048

REACTIONS (2)
  - Inappropriate prescribing [Unknown]
  - Pancreatic carcinoma [Fatal]
